FAERS Safety Report 9457515 (Version 1)
Quarter: 2013Q3

REPORT INFORMATION
  Report Type: Spontaneous
  Country: DE (occurrence: None)
  Receive Date: 20130812
  Receipt Date: 20130812
  Transmission Date: 20140515
  Serious: Yes (Hospitalization)
  Sender: FDA-Public Use
  Company Number: AG-2012-1633

PATIENT
  Age: 84 Year
  Sex: Male
  Weight: 63.5 kg

DRUGS (11)
  1. CHLORAMBUCIL [Suspect]
     Indication: CHRONIC LYMPHOCYTIC LEUKAEMIA
     Dosage: 44 MILLIGRAM (UNKNOWN DAY 1, DAY 14), ORAL
     Route: 048
     Dates: start: 20110427
  2. RITUXIMAB [Suspect]
     Dosage: FROM DAY 1 - TO 28 UNKNOWN (857 MILLIGRAM, 1 IN 1 DAYS), INTRAVENOUS (NOT OTHERWISE SPECIFIED)
     Route: 042
  3. METFORMIN (METFORMIN) [Concomitant]
  4. AMLODIPIN (AMLODIPINE) (AMLODIPINE) [Concomitant]
  5. ASPIRIN (ACETYLSALICYLIC ACID) [Concomitant]
  6. ACTRAPID (INSULIN HUMAN) [Concomitant]
  7. SIMVASTATIN (SIMVASTATIN) [Concomitant]
  8. BISOPROLOL (BISOPROLOL) [Concomitant]
  9. FUROSEMIDE (FUROSEMIDE) [Concomitant]
  10. LISINOPRIL (LISINOPRIL) [Concomitant]
  11. SOLU-DACORTIN (PREDNISOLONE) [Concomitant]

REACTIONS (1)
  - Pneumonia [None]
